FAERS Safety Report 23648461 (Version 1)
Quarter: 2024Q1

REPORT INFORMATION
  Report Type: Spontaneous
  Country: US (occurrence: US)
  Receive Date: 20240319
  Receipt Date: 20240319
  Transmission Date: 20240410
  Serious: No
  Sender: FDA-Public Use
  Company Number: US-TEVA-VS-3139188

PATIENT
  Age: 64 Year
  Sex: Female

DRUGS (20)
  1. PENICILLIN [Suspect]
     Active Substance: PENICILLIN
     Indication: Product used for unknown indication
     Route: 065
  2. ATORVASTATIN [Concomitant]
     Active Substance: ATORVASTATIN
  3. DOK [Concomitant]
     Active Substance: DOCUSATE SODIUM
  4. Insulin degludec (Tresiba Flextouch U-100) [Concomitant]
  5. RITUXIMAB [Concomitant]
     Active Substance: RITUXIMAB
  6. BACLOFEN [Concomitant]
     Active Substance: BACLOFEN
  7. DULOXETINE [Concomitant]
     Active Substance: DULOXETINE
  8. LIDOCAINE [Concomitant]
     Active Substance: LIDOCAINE
  9. METFORMIN [Concomitant]
     Active Substance: METFORMIN HYDROCHLORIDE
  10. ONDANSETRON [Concomitant]
     Active Substance: ONDANSETRON
  11. CAPSAICIN [Concomitant]
     Active Substance: CAPSAICIN
  12. CHOLECALCIFEROL [Concomitant]
     Active Substance: CHOLECALCIFEROL
  13. MORPHINE [Concomitant]
     Active Substance: MORPHINE
  14. POLYETHYLENE GLYCOL [Concomitant]
     Active Substance: POLYETHYLENE GLYCOL
  15. ACETAMINOPHEN [Concomitant]
     Active Substance: ACETAMINOPHEN
  16. VITAMIN D3 [Concomitant]
     Active Substance: CHOLECALCIFEROL
  17. NORCO [Concomitant]
     Active Substance: ACETAMINOPHEN\HYDROCODONE BITARTRATE
  18. NAPROXEN [Concomitant]
     Active Substance: NAPROXEN
  19. PANTOPRAZOLE [Concomitant]
     Active Substance: PANTOPRAZOLE
  20. PREGABALIN [Concomitant]
     Active Substance: PREGABALIN

REACTIONS (1)
  - Rash [Unknown]
